FAERS Safety Report 21654092 (Version 2)
Quarter: 2023Q1

REPORT INFORMATION
  Report Type: Report from Study
  Country: CA (occurrence: CA)
  Receive Date: 20221129
  Receipt Date: 20230227
  Transmission Date: 20230417
  Serious: Yes (Other)
  Sender: FDA-Public Use
  Company Number: CA-ABBVIE-4176822

PATIENT
  Age: 43 Year
  Sex: Male

DRUGS (1)
  1. HUMIRA [Suspect]
     Active Substance: ADALIMUMAB
     Indication: Crohn^s disease
     Route: 058
     Dates: start: 20110529

REACTIONS (9)
  - Large intestinal stenosis [Unknown]
  - Drug ineffective [Unknown]
  - Myocardial ischaemia [Unknown]
  - Flatulence [Unknown]
  - Diarrhoea [Unknown]
  - Post procedural complication [Unknown]
  - Faecal calprotectin increased [Unknown]
  - Intestinal anastomosis [Unknown]
  - Post procedural inflammation [Unknown]

NARRATIVE: CASE EVENT DATE: 20200901
